FAERS Safety Report 6771494-1 (Version None)
Quarter: 2010Q2

REPORT INFORMATION
  Report Type: 
  Country: None (occurrence: None)
  Receive Date: 20100616
  Receipt Date: 20100604
  Transmission Date: 20101027
  Serious: Yes (Life-Threatening, Hospitalization)
  Sender: FDA-Public Use
  Company Number: ES-ROCHE-701457

PATIENT
  Sex: Female
  Weight: 61 kg

DRUGS (9)
  1. ROACTEMRA [Suspect]
     Indication: RHEUMATOID ARTHRITIS
     Dosage: FORM: INFUSION (DOSE: 08 MG/KG EVERY MONTH)
     Route: 042
     Dates: start: 20100126
  2. ROACTEMRA [Suspect]
     Route: 042
     Dates: start: 20100224
  3. ROACTEMRA [Suspect]
     Route: 042
     Dates: start: 20100324
  4. ROACTEMRA [Suspect]
     Route: 042
     Dates: start: 20100424, end: 20100502
  5. PREDNISONE [Concomitant]
     Indication: RHEUMATOID ARTHRITIS
     Route: 048
     Dates: start: 19980101
  6. DOLQUINE [Concomitant]
     Indication: RHEUMATOID ARTHRITIS
     Route: 048
     Dates: start: 19980101
  7. METHOTREXATE [Concomitant]
     Indication: RHEUMATOID ARTHRITIS
     Route: 058
     Dates: start: 20010401
  8. IBUPROFEN [Concomitant]
     Route: 048
  9. NIFEDIPINE [Concomitant]
     Route: 048

REACTIONS (4)
  - CHOLECYSTITIS ACUTE [None]
  - NEUTROPENIA [None]
  - PNEUMONIA [None]
  - SEPTIC SHOCK [None]
